FAERS Safety Report 6845874-X (Version None)
Quarter: 2010Q3

REPORT INFORMATION
  Report Type: 
  Country: None (occurrence: None)
  Receive Date: 20100715
  Receipt Date: 20071031
  Transmission Date: 20110219
  Serious: No
  Sender: FDA-Public Use
  Company Number: US-PFIZER INC-2007072830

PATIENT
  Sex: Female
  Weight: 60.5 kg

DRUGS (5)
  1. CHANTIX [Suspect]
     Indication: SMOKING CESSATION THERAPY
     Dates: start: 20070801
  2. LOPRESSOR [Concomitant]
  3. VALSARTAN [Concomitant]
  4. ZOCOR [Concomitant]
  5. ACETYLSALICYLIC ACID [Concomitant]

REACTIONS (2)
  - BACK PAIN [None]
  - CHEST DISCOMFORT [None]
